FAERS Safety Report 23342850 (Version 2)
Quarter: 2024Q1

REPORT INFORMATION
  Report Type: Spontaneous
  Country: ES (occurrence: ES)
  Receive Date: 20231227
  Receipt Date: 20240131
  Transmission Date: 20240410
  Serious: Yes (Hospitalization, Other)
  Sender: FDA-Public Use
  Company Number: ES-BRISTOL-MYERS SQUIBB COMPANY-2023-185312

PATIENT
  Age: 37 Year
  Sex: Female

DRUGS (5)
  1. MAVACAMTEN [Suspect]
     Active Substance: MAVACAMTEN
     Indication: Angina pectoris
     Dosage: DOSE : 5 MG;     FREQ : UNAVAILABLE
     Dates: start: 20231206, end: 20231214
  2. FOSFOMYCIN [Concomitant]
     Active Substance: FOSFOMYCIN
     Indication: Product used for unknown indication
  3. IBUPROFEN [Concomitant]
     Active Substance: IBUPROFEN
     Indication: Product used for unknown indication
  4. ACETAMINOPHEN [Concomitant]
     Active Substance: ACETAMINOPHEN
     Indication: Product used for unknown indication
  5. BISOPROLOL [Concomitant]
     Active Substance: BISOPROLOL\BISOPROLOL FUMARATE
     Indication: Hypertrophic cardiomyopathy
     Route: 048
     Dates: start: 2021

REACTIONS (5)
  - Headache [Recovered/Resolved]
  - Urinary tract infection [Recovered/Resolved]
  - Angioedema [Recovered/Resolved]
  - Off label use [Unknown]
  - Transvalvular pressure gradient increased [Unknown]

NARRATIVE: CASE EVENT DATE: 20231213
